FAERS Safety Report 4646179-8 (Version None)
Quarter: 2005Q2

REPORT INFORMATION
  Report Type: 
  Country: None (occurrence: None)
  Receive Date: 20050427
  Receipt Date: 20040719
  Transmission Date: 20051028
  Serious: Yes (Other)
  Sender: FDA-Public Use
  Company Number: US-KINGPHARMUSA00001-K200401090

PATIENT
  Sex: Female

DRUGS (2)
  1. LEVOXYL [Suspect]
     Dosage: UNK, UNK
  2. LEVOXYL [Suspect]
     Dosage: 150 MCG, UNK

REACTIONS (7)
  - DIZZINESS [None]
  - DYSPEPSIA [None]
  - DYSPHAGIA [None]
  - FEELING ABNORMAL [None]
  - FEELING DRUNK [None]
  - SENSATION OF FOREIGN BODY [None]
  - THROAT IRRITATION [None]
